FAERS Safety Report 8252585-5 (Version None)
Quarter: 2012Q2

REPORT INFORMATION
  Report Type: 
  Country: None (occurrence: None)
  Receive Date: 20120402
  Receipt Date: 20111109
  Transmission Date: 20120825
  Serious: No
  Sender: FDA-Public Use
  Company Number: US-ABBOTT-11P-163-0872827-00

PATIENT
  Sex: Male
  Weight: 101.24 kg

DRUGS (3)
  1. AVALIDE [Concomitant]
     Indication: HYPERTENSION
  2. ARMOR THYROID [Concomitant]
     Indication: HYPOTHYROIDISM
  3. ANDROGEL [Suspect]
     Indication: ANDROGEN DEFICIENCY
     Dosage: 2 PACKETS A DAY
     Dates: start: 20040101

REACTIONS (4)
  - MUSCLE SPASMS [None]
  - DRUG EFFECT DECREASED [None]
  - ASTHENIA [None]
  - TREMOR [None]
